FAERS Safety Report 6868245-9 (Version None)
Quarter: 2010Q3

REPORT INFORMATION
  Report Type: 
  Country: None (occurrence: None)
  Receive Date: 20100722
  Receipt Date: 20080625
  Transmission Date: 20110219
  Serious: Yes (Other)
  Sender: FDA-Public Use
  Company Number: US-PFIZER INC-2008041693

PATIENT
  Sex: Female
  Weight: 70.8 kg

DRUGS (7)
  1. CHANTIX [Suspect]
     Indication: NICOTINE DEPENDENCE
     Dates: start: 20070116, end: 20070611
  2. LISINOPRIL [Concomitant]
  3. HYDROCHLOROTHIAZIDE [Concomitant]
  4. NIASPAN [Concomitant]
  5. ATENOLOL [Concomitant]
  6. PROTONIX [Concomitant]
  7. UNITHROID [Concomitant]

REACTIONS (3)
  - DEPRESSION [None]
  - SUICIDAL IDEATION [None]
  - TOBACCO USER [None]
